FAERS Safety Report 5381132-0 (Version None)
Quarter: 2007Q3

REPORT INFORMATION
  Report Type: 
  Country: None (occurrence: None)
  Receive Date: 20070706
  Receipt Date: 20070627
  Transmission Date: 20080115
  Serious: Yes (Life-Threatening, Hospitalization)
  Sender: FDA-Public Use
  Company Number: ES-PFIZER INC-2007049475

PATIENT
  Age: 46 Year
  Sex: Female

DRUGS (4)
  1. AMLODIPINE [Suspect]
     Indication: ESSENTIAL HYPERTENSION
     Route: 048
     Dates: start: 20070101, end: 20070328
  2. ATENOLOL [Suspect]
     Indication: ESSENTIAL HYPERTENSION
     Dosage: DAILY DOSE:50MG
     Route: 048
     Dates: start: 20070101, end: 20070328
  3. TELMISARTAN [Suspect]
     Indication: ESSENTIAL HYPERTENSION
     Dosage: DAILY DOSE:80MG
     Route: 048
     Dates: start: 20070101, end: 20070328
  4. HYDROCHLOROTHIAZIDE [Suspect]
     Indication: ESSENTIAL HYPERTENSION
     Dosage: DAILY DOSE:80MG
     Route: 048
     Dates: start: 20070101, end: 20070328

REACTIONS (3)
  - HEPATIC ENCEPHALOPATHY [None]
  - HEPATITIS [None]
  - PROTHROMBIN LEVEL DECREASED [None]
